FAERS Safety Report 4601145-3 (Version None)
Quarter: 2005Q1

REPORT INFORMATION
  Report Type: 
  Country: None (occurrence: None)
  Receive Date: 20050307
  Receipt Date: 20050307
  Transmission Date: 20050727
  Serious: Yes (Other)
  Sender: FDA-Public Use
  Company Number: None

PATIENT
  Sex: Male
  Weight: 67.1324 kg

DRUGS (2)
  1. COPPERTONE ENDLESS SUMMER   SPF45     SCHERING PLOUGH [Suspect]
     Indication: PROPHYLAXIS AGAINST SOLAR RADIATION
     Dosage: CUTANEOUS
     Route: 003
     Dates: start: 20050212, end: 20050212
  2. COPPERTONE ENDLESS SUMMER   SPF45     SCHERING PLOUGH [Suspect]
     Indication: PROPHYLAXIS AGAINST SOLAR RADIATION
     Dosage: CUTANEOUS
     Route: 003
     Dates: start: 20050225, end: 20050225

REACTIONS (2)
  - APPLICATION SITE DESQUAMATION [None]
  - APPLICATION SITE OEDEMA [None]
